FAERS Safety Report 7661876-8 (Version None)
Quarter: 2011Q3

REPORT INFORMATION
  Report Type: 
  Country: None (occurrence: None)
  Receive Date: 20110805
  Receipt Date: 20101215
  Transmission Date: 20111222
  Serious: No
  Sender: FDA-Public Use
  Company Number: US-ABBOTT-10P-163-0691681-00

PATIENT
  Sex: Female
  Weight: 79.45 kg

DRUGS (3)
  1. ASPIRIN [Concomitant]
     Indication: PRODUCT USED FOR UNKNOWN INDICATION
  2. NIASPAN [Suspect]
     Indication: BLOOD CHOLESTEROL INCREASED
     Dosage: 1000MG QHS
     Dates: start: 20101108
  3. NIASPAN [Suspect]
     Indication: BLOOD TRIGLYCERIDES

REACTIONS (3)
  - PRURITUS [None]
  - SKIN BURNING SENSATION [None]
  - PARAESTHESIA [None]
